FAERS Safety Report 4579722-8 (Version None)
Quarter: 2005Q1

REPORT INFORMATION
  Report Type: 
  Country: None (occurrence: None)
  Receive Date: 20050210
  Receipt Date: 20050128
  Transmission Date: 20050727
  Serious: Yes (Hospitalization, Disabling)
  Sender: FDA-Public Use
  Company Number: 2004UW25661

PATIENT
  Age: 61 Year
  Sex: Male
  Weight: 110.2241 kg

DRUGS (11)
  1. CRESTOR [Suspect]
     Indication: HYPERLIPIDAEMIA
     Dosage: 20 MG PO
     Route: 048
     Dates: start: 20040101, end: 20040927
  2. FUROSEMIDE [Concomitant]
  3. DIOVAN HCT [Concomitant]
  4. COUMADIN [Concomitant]
  5. PLAVIX [Concomitant]
  6. DIGOXIN [Concomitant]
  7. TOPROL-XL [Concomitant]
  8. NITROSTAT [Concomitant]
  9. METOPROLOL TARTRATE [Concomitant]
  10. NITROGLYCERIN [Concomitant]
  11. OXYCODONE [Concomitant]

REACTIONS (19)
  - ANTINUCLEAR ANTIBODY POSITIVE [None]
  - ASTHENIA [None]
  - BLOOD ALBUMIN DECREASED [None]
  - CHEST DISCOMFORT [None]
  - CHEST PAIN [None]
  - COLONIC POLYP [None]
  - DIVERTICULUM [None]
  - DIZZINESS [None]
  - GASTRITIS [None]
  - GASTROINTESTINAL HAEMORRHAGE [None]
  - GLOMERULONEPHRITIS MEMBRANOUS [None]
  - HAEMORRHOIDS [None]
  - HIATUS HERNIA [None]
  - IRON DEFICIENCY ANAEMIA [None]
  - LIGHT CHAIN ANALYSIS INCREASED [None]
  - NEPHROTIC SYNDROME [None]
  - OEDEMA PERIPHERAL [None]
  - OESOPHAGITIS [None]
  - RENAL INTERSTITIAL FIBROSIS [None]
